FAERS Safety Report 8233128-9 (Version None)
Quarter: 2012Q1

REPORT INFORMATION
  Report Type: 
  Country: None (occurrence: None)
  Receive Date: 20120326
  Receipt Date: 20120316
  Transmission Date: 20120608
  Serious: Yes (Hospitalization)
  Sender: FDA-Public Use
  Company Number: US-RB-033960-12

PATIENT
  Sex: Male

DRUGS (20)
  1. VALTREX [Concomitant]
     Indication: PRODUCT USED FOR UNKNOWN INDICATION
     Dosage: TAKE ONE TABLET BY MOUTH 3 TIMES A DAY FOR 3 DAYS
     Route: 048
     Dates: start: 20110906, end: 20110909
  2. PERCOCET [Concomitant]
     Indication: PRODUCT USED FOR UNKNOWN INDICATION
     Dosage: TAKE ONE TABLET BY MOUTH EVERY 4 HOURS AS NEEDED FOR PAIN
     Route: 048
     Dates: start: 20110906, end: 20111020
  3. ASPIRIN [Concomitant]
     Indication: PRODUCT USED FOR UNKNOWN INDICATION
  4. COREG [Concomitant]
     Indication: PRODUCT USED FOR UNKNOWN INDICATION
  5. HYDROCHLOROTHIAZIDE [Concomitant]
     Indication: PRODUCT USED FOR UNKNOWN INDICATION
     Dosage: TAKE ONE TABLET BY MOUTH DAILY
     Route: 048
     Dates: start: 20110906, end: 20111012
  6. OPTIVAR [Concomitant]
     Indication: PRODUCT USED FOR UNKNOWN INDICATION
     Dosage: ONE DROP EACH EYE EVERY 8-12 HRS FOR EYE ITCHING
     Dates: start: 20101108, end: 20120119
  7. HYDRALAZINE HCL [Concomitant]
     Indication: PRODUCT USED FOR UNKNOWN INDICATION
     Dosage: TAKE ONE TABLET BY MOUTH TWICE DAILY
     Route: 048
     Dates: start: 20110906, end: 20110920
  8. POTASSIUM CHLORIDE [Concomitant]
     Indication: PRODUCT USED FOR UNKNOWN INDICATION
     Dosage: TAKE ONE CAPSULE BY MOUTH DAILY
     Route: 048
     Dates: start: 20110906, end: 20110928
  9. DIOVAN [Concomitant]
     Indication: PRODUCT USED FOR UNKNOWN INDICATION
     Dosage: FOR 30 YEARS
  10. MAXAIR [Concomitant]
     Indication: PRODUCT USED FOR UNKNOWN INDICATION
     Dosage: 2 PUFFS EVERY 4 HOURS AS NEEDED FOR COUGH
     Dates: start: 20101108, end: 20110912
  11. CIALIS [Concomitant]
     Indication: PRODUCT USED FOR UNKNOWN INDICATION
     Dosage: ONE PILL BY MOUTH PRIOR TO INTERCOURSE, NO MORE THAN 1 DOSE IN 24 HOURS
     Route: 048
     Dates: start: 20100517, end: 20110912
  12. SINGULAIR [Concomitant]
     Indication: PRODUCT USED FOR UNKNOWN INDICATION
     Dosage: ONE TABLET EACH EVENING
     Route: 048
     Dates: start: 20110824, end: 20110912
  13. DELSYM [Suspect]
     Indication: NASOPHARYNGITIS
     Route: 048
     Dates: start: 20110830, end: 20110830
  14. MULTI-VITAMINS [Concomitant]
     Indication: PRODUCT USED FOR UNKNOWN INDICATION
     Dosage: TAKE ONE TABLET BY MOUTH DAILY
     Route: 048
     Dates: start: 20110906
  15. BACITRACIN [Concomitant]
     Indication: PRODUCT USED FOR UNKNOWN INDICATION
     Dosage: 1 APPLICATION EXTERNALLY 3 X DAY
     Dates: start: 20110906, end: 20111020
  16. DELSYM [Suspect]
     Indication: COUGH
     Route: 048
     Dates: start: 20120112
  17. PREDNISONE TAB [Concomitant]
     Indication: PRODUCT USED FOR UNKNOWN INDICATION
     Dosage: TAKE BY MOUTH AS DIRECTED
     Route: 048
     Dates: start: 20110906, end: 20111220
  18. UROXATRAL [Concomitant]
     Indication: PRODUCT USED FOR UNKNOWN INDICATION
     Dosage: 1 TABLET DAILY AFTER A MEAL
     Route: 048
     Dates: start: 20110609, end: 20120223
  19. CARVEDILOL [Concomitant]
     Indication: PRODUCT USED FOR UNKNOWN INDICATION
     Dosage: ONE PILL BY MOUTH TWICE A DAY WITH FOOD
     Route: 048
     Dates: start: 20110315
  20. AMLODIPINE [Concomitant]
     Indication: PRODUCT USED FOR UNKNOWN INDICATION
     Dosage: ONE PILL BY MOUTH ONCE A DAY
     Route: 048
     Dates: start: 20100804, end: 20111019

REACTIONS (3)
  - STRIDOR [None]
  - RESPIRATORY DISORDER [None]
  - VOCAL CORD PARALYSIS [None]
